FAERS Safety Report 18883481 (Version 3)
Quarter: 2021Q2

REPORT INFORMATION
  Report Type: Report from Study
  Country: BR (occurrence: BR)
  Receive Date: 20210212
  Receipt Date: 20210512
  Transmission Date: 20210717
  Serious: Yes (Hospitalization, Other)
  Sender: FDA-Public Use
  Company Number: NVSC2021BR032896

PATIENT
  Age: 41 Year
  Sex: Female
  Weight: 116 kg

DRUGS (3)
  1. COSENTYX [Suspect]
     Active Substance: SECUKINUMAB
     Dosage: UNK
     Route: 065
     Dates: start: 202012
  2. COSENTYX [Suspect]
     Active Substance: SECUKINUMAB
     Indication: PSORIATIC ARTHROPATHY
     Dosage: 2 DF (2 AMPOULES), QMO
     Route: 058
     Dates: start: 2019
  3. COSENTYX [Suspect]
     Active Substance: SECUKINUMAB
     Indication: PSORIASIS
     Dosage: 300 MG, UNKNOWN
     Route: 065
     Dates: start: 201908

REACTIONS (11)
  - Fatigue [Unknown]
  - Immunosuppression [Recovered/Resolved]
  - Skin lesion [Not Recovered/Not Resolved]
  - Headache [Recovered/Resolved]
  - Aphthous ulcer [Recovered/Resolved]
  - COVID-19 [Recovered/Resolved]
  - Nausea [Unknown]
  - Myalgia [Unknown]
  - Vomiting [Unknown]
  - Immunosuppression [Unknown]
  - Migraine [Unknown]

NARRATIVE: CASE EVENT DATE: 202101
